FAERS Safety Report 13990159 (Version 1)
Quarter: 2017Q3

REPORT INFORMATION
  Report Type: Spontaneous
  Country: US (occurrence: US)
  Receive Date: 20170920
  Receipt Date: 20170920
  Transmission Date: 20171128
  Serious: Yes (Other)
  Sender: FDA-Public Use
  Company Number: US-TAKEDA-2017TUS019161

PATIENT
  Age: 30 Year
  Sex: Female

DRUGS (2)
  1. COLCHICINE. [Suspect]
     Active Substance: COLCHICINE
     Dosage: 1.2 MG, QD
     Route: 065
  2. COLCHICINE. [Suspect]
     Active Substance: COLCHICINE
     Indication: FAMILIAL MEDITERRANEAN FEVER
     Dosage: 0.6 MG, QD
     Route: 065
     Dates: start: 1995

REACTIONS (2)
  - Exposure during pregnancy [Unknown]
  - Complication of pregnancy [Unknown]
